FAERS Safety Report 5837192-3 (Version None)
Quarter: 2008Q3

REPORT INFORMATION
  Report Type: 
  Country: None (occurrence: None)
  Receive Date: 20080731
  Receipt Date: 20080610
  Transmission Date: 20090109
  Serious: No
  Sender: FDA-Public Use
  Company Number: US200806002530

PATIENT
  Age: 50 Year
  Sex: Male
  Weight: 120.2 kg

DRUGS (1)
  1. BYETTA [Suspect]
     Indication: TYPE 2 DIABETES MELLITUS
     Dosage: 5 UG, 2/D, SUBCUTANEOUS
     Route: 058
     Dates: start: 20080520, end: 20080525

REACTIONS (3)
  - DECREASED APPETITE [None]
  - DRY MOUTH [None]
  - WEIGHT DECREASED [None]
